FAERS Safety Report 7584606-7 (Version None)
Quarter: 2011Q2

REPORT INFORMATION
  Report Type: 
  Country: None (occurrence: None)
  Receive Date: 20110630
  Receipt Date: 20110621
  Transmission Date: 20111010
  Serious: Yes (Other)
  Sender: FDA-Public Use
  Company Number: US-ASTRAZENECA-2011SE17327

PATIENT
  Age: 70 Year
  Sex: Male
  Weight: 93.4 kg

DRUGS (4)
  1. AVAPRO [Concomitant]
     Indication: HYPERTENSION
     Dosage: DAILY
     Route: 048
  2. METOPROLOL TARTRATE [Concomitant]
     Indication: HYPERTENSION
     Dosage: DAILY
     Route: 048
  3. CRESTOR [Suspect]
     Indication: HIGH DENSITY LIPOPROTEIN DECREASED
     Route: 048
     Dates: start: 20100601, end: 20110317
  4. LOSOL [Concomitant]
     Dosage: DAILY
     Route: 048

REACTIONS (4)
  - TYPE 2 DIABETES MELLITUS [None]
  - LIVER FUNCTION TEST ABNORMAL [None]
  - DRUG INEFFECTIVE [None]
  - PROSTATIC SPECIFIC ANTIGEN INCREASED [None]
